FAERS Safety Report 6885333-1 (Version None)
Quarter: 2010Q3

REPORT INFORMATION
  Report Type: 
  Country: None (occurrence: None)
  Receive Date: 20100727
  Receipt Date: 20100712
  Transmission Date: 20110219
  Serious: Yes (Life-Threatening, Hospitalization, Other)
  Sender: FDA-Public Use
  Company Number: 2010P1000300

PATIENT
  Age: 56 Year
  Sex: Male

DRUGS (4)
  1. METOCLOPRAMIDE [Suspect]
     Indication: POSTOPERATIVE ILEUS
     Dosage: 20 MG;Q6H; IV
     Route: 042
  2. DIGOXIN [Suspect]
     Indication: ATRIAL FIBRILLATION
  3. AMIODARONE HCL [Concomitant]
  4. PREV MEDS [Concomitant]

REACTIONS (6)
  - BRADYARRHYTHMIA [None]
  - CARDIAC ARREST [None]
  - ILEUS [None]
  - NODAL RHYTHM [None]
  - SINUS TACHYCARDIA [None]
  - ULCER HAEMORRHAGE [None]
